FAERS Safety Report 8561650-4 (Version None)
Quarter: 2012Q3

REPORT INFORMATION
  Report Type: 
  Country: None (occurrence: None)
  Receive Date: 20120727
  Receipt Date: 20120727
  Transmission Date: 20120928
  Serious: Yes (Other)
  Sender: FDA-Public Use
  Company Number: None

PATIENT
  Sex: Female

DRUGS (3)
  1. VIIBRYD [Suspect]
     Indication: DEPRESSION
     Dosage: 10MG ONCE A DAY PO
     Route: 048
  2. LISINOPRIL [Concomitant]
  3. DOXYCYCLINE HCL [Concomitant]

REACTIONS (6)
  - MEMORY IMPAIRMENT [None]
  - MANIA [None]
  - TENSION [None]
  - TREMOR [None]
  - CONTUSION [None]
  - HAEMATOCHEZIA [None]
